FAERS Safety Report 7104922-2 (Version None)
Quarter: 2010Q4

REPORT INFORMATION
  Report Type: 
  Country: None (occurrence: None)
  Receive Date: 20101116
  Receipt Date: 20100418
  Transmission Date: 20110411
  Serious: Yes (Hospitalization, Other)
  Sender: FDA-Public Use
  Company Number: US-ASTRAZENECA-2009UW19580

PATIENT
  Age: 46 Year
  Sex: Male
  Weight: 107.5 kg

DRUGS (8)
  1. SEROQUEL [Suspect]
     Indication: DEPRESSION
     Dosage: 25-100 MG DAILY
     Route: 048
     Dates: start: 20011005, end: 20050115
  2. SEROQUEL [Suspect]
     Indication: AFFECTIVE DISORDER
     Dosage: 25-100 MG DAILY
     Route: 048
     Dates: start: 20011005, end: 20050115
  3. TRAZODONE [Concomitant]
     Dosage: 50-100 MG
     Dates: start: 20070101
  4. HYDROXYZINE [Concomitant]
     Dates: start: 20070101
  5. LOPID [Concomitant]
     Dates: start: 20070101
  6. LISINOPRIL [Concomitant]
     Dosage: 10-80 MG DAILY
     Dates: start: 20070101
  7. CYMBALTA [Concomitant]
     Dates: start: 20090101
  8. COREG [Concomitant]

REACTIONS (8)
  - BLOOD TRIGLYCERIDES INCREASED [None]
  - ERECTILE DYSFUNCTION [None]
  - NAUSEA [None]
  - NERVE INJURY [None]
  - NEUROPATHY PERIPHERAL [None]
  - PANCREATITIS [None]
  - TYPE 1 DIABETES MELLITUS [None]
  - TYPE 2 DIABETES MELLITUS [None]
